FAERS Safety Report 23216367 (Version 1)
Quarter: 2023Q4

REPORT INFORMATION
  Report Type: Spontaneous
  Country: FR (occurrence: FR)
  Receive Date: 20231122
  Receipt Date: 20231122
  Transmission Date: 20240109
  Serious: Yes (Hospitalization, Other)
  Sender: FDA-Public Use
  Company Number: None

PATIENT
  Age: 65 Year
  Sex: Male
  Weight: 133 kg

DRUGS (11)
  1. RIFAMPIN [Suspect]
     Active Substance: RIFAMPIN
     Indication: Lung disorder
     Dosage: 1200 MG, QD
     Route: 042
     Dates: start: 20231023, end: 20231027
  2. SODIUM FUORIDE [Concomitant]
  3. LEVETIRACETAM [Concomitant]
     Active Substance: LEVETIRACETAM
  4. DUPHALAC [Concomitant]
     Active Substance: LACTULOSE
  5. HYDROCORTISONE [Concomitant]
     Active Substance: HYDROCORTISONE
  6. LANSOPRAZOLE [Concomitant]
     Active Substance: LANSOPRAZOLE
  7. HEPARIN SODIUM [Concomitant]
     Active Substance: HEPARIN SODIUM
  8. CLOXACILLIN SODIUM [Concomitant]
     Active Substance: CLOXACILLIN SODIUM
  9. NOREPINEPHRINE BITARTRATE [Concomitant]
     Active Substance: NOREPINEPHRINE BITARTRATE
     Dosage: UNK
  10. KARDEGIC [Concomitant]
     Active Substance: ASPIRIN DL-LYSINE
  11. AMIODARONE [Concomitant]
     Active Substance: AMIODARONE

REACTIONS (1)
  - Rhabdomyolysis [Recovered/Resolved]
